FAERS Safety Report 9778580 (Version 2)
Quarter: 2014Q1

REPORT INFORMATION
  Report Type: Spontaneous
  Country: US (occurrence: US)
  Receive Date: 20131223
  Receipt Date: 20140226
  Transmission Date: 20141002
  Serious: Yes (Death, Life-Threatening, Hospitalization, Disabling, Other)
  Sender: FDA-Public Use
  Company Number: US-009507513-1312USA010346

PATIENT
  Sex: Male
  Weight: 97.96 kg

DRUGS (4)
  1. JANUVIA [Suspect]
     Indication: TYPE 2 DIABETES MELLITUS
     Dosage: 100 MG, QD
     Route: 048
     Dates: start: 20090716, end: 20120819
  2. BYETTA [Suspect]
     Indication: TYPE 2 DIABETES MELLITUS
     Dosage: 10 MICROGRAM, BID
     Dates: start: 20050916, end: 20080924
  3. ONGLYZA [Suspect]
     Indication: TYPE 2 DIABETES MELLITUS
     Dosage: 5 MG, QD
     Dates: start: 20091218, end: 20110929
  4. VICTOZA [Suspect]
     Indication: TYPE 2 DIABETES MELLITUS
     Dosage: 5 MG, QD
     Dates: start: 20101224, end: 20110123

REACTIONS (27)
  - Adenocarcinoma pancreas [Fatal]
  - Biopsy liver [Unknown]
  - Pancreatectomy [Unknown]
  - Gastroenterostomy [Unknown]
  - Ventricular tachycardia [Unknown]
  - Atrial fibrillation [Recovered/Resolved]
  - Bundle branch block left [Unknown]
  - Haemorrhagic anaemia [Unknown]
  - Colitis [Recovered/Resolved]
  - Hepatic necrosis [Unknown]
  - Cholecystectomy [Unknown]
  - Pancreatitis chronic [Not Recovered/Not Resolved]
  - Hypertension [Unknown]
  - Pancreatic cyst [Unknown]
  - Abnormal loss of weight [Unknown]
  - Jaundice [Unknown]
  - Palpitations [Recovered/Resolved]
  - Clavicle fracture [Unknown]
  - Irritable bowel syndrome [Unknown]
  - Ankle operation [Unknown]
  - Hypomagnesaemia [Recovered/Resolved]
  - Hypokalaemia [Unknown]
  - Hypophosphataemia [Recovered/Resolved]
  - Blood gastrin increased [Unknown]
  - Abdominal pain [Unknown]
  - Nausea [Unknown]
  - Vomiting [Unknown]
